FAERS Safety Report 17680233 (Version 2)
Quarter: 2020Q2

REPORT INFORMATION
  Report Type: Spontaneous
  Country: US (occurrence: US)
  Receive Date: 20200417
  Receipt Date: 20200428
  Transmission Date: 20200714
  Serious: No
  Sender: FDA-Public Use
  Company Number: US-ASTRAZENECA-2020SE43367

PATIENT
  Sex: Female
  Weight: 57.6 kg

DRUGS (1)
  1. SYMBICORT [Suspect]
     Active Substance: BUDESONIDE\FORMOTEROL FUMARATE DIHYDRATE
     Indication: DYSPNOEA
     Dosage: 160/4.5 MCG TWO PUFFS, TWICE A DAY
     Route: 055
     Dates: start: 20200124

REACTIONS (5)
  - Respiration abnormal [Unknown]
  - Intentional device misuse [Not Recovered/Not Resolved]
  - Product dose omission [Unknown]
  - Drug delivery system issue [Unknown]
  - Wrong technique in product usage process [Unknown]
